FAERS Safety Report 13091515 (Version 2)
Quarter: 2017Q3

REPORT INFORMATION
  Report Type: Report from Study
  Country: DE (occurrence: DE)
  Receive Date: 20170106
  Receipt Date: 20170807
  Transmission Date: 20171127
  Serious: Yes (Hospitalization, Disabling)
  Sender: FDA-Public Use
  Company Number: DE-ROCHE-1874873

PATIENT
  Age: 55 Year
  Sex: Female

DRUGS (5)
  1. HYDROXYCHLOROQUINE [Suspect]
     Active Substance: HYDROXYCHLOROQUINE
     Route: 065
  2. RITUXIMAB. [Suspect]
     Active Substance: RITUXIMAB
     Indication: RHEUMATOID ARTHRITIS
     Route: 042
     Dates: start: 20150922
  3. RITUXIMAB. [Suspect]
     Active Substance: RITUXIMAB
     Dosage: FURTHER ADMINISTARIONS ON 18/NOV/2009, 17/NOV/2010, 22/JUN/2011, 21/FEB/2012, JUN/2013, JAN/2014, AU
     Route: 042
     Dates: start: 20081219
  4. HYDROXYCHLOROQUINE [Suspect]
     Active Substance: HYDROXYCHLOROQUINE
     Indication: RHEUMATOID ARTHRITIS
     Route: 065
  5. RITUXIMAB. [Suspect]
     Active Substance: RITUXIMAB
     Route: 042
     Dates: start: 20160420

REACTIONS (10)
  - Joint instability [Recovered/Resolved with Sequelae]
  - Musculoskeletal disorder [Unknown]
  - Arthrodesis [Unknown]
  - Silicon granuloma [Recovered/Resolved]
  - Sinusitis [Unknown]
  - Arthralgia [Unknown]
  - Tendon rupture [Recovered/Resolved with Sequelae]
  - Nerve compression [Recovered/Resolved with Sequelae]
  - Joint range of motion decreased [Unknown]
  - Arthritis [Recovered/Resolved with Sequelae]

NARRATIVE: CASE EVENT DATE: 20120915
